FAERS Safety Report 7409792-0 (Version None)
Quarter: 2011Q2

REPORT INFORMATION
  Report Type: 
  Country: None (occurrence: None)
  Receive Date: 20110412
  Receipt Date: 20110407
  Transmission Date: 20111010
  Serious: Yes (Hospitalization)
  Sender: FDA-Public Use
  Company Number: JP-PFIZER INC-2010179604

PATIENT
  Age: 48 Year
  Sex: Female
  Weight: 51.5 kg

DRUGS (19)
  1. PROTECADIN [Concomitant]
     Indication: GASTRITIS PROPHYLAXIS
     Dosage: 10 MG, 2X/DAY
     Route: 048
     Dates: start: 20060417, end: 20101220
  2. PROTECADIN [Concomitant]
     Dosage: 10 MG, 2X/DAY
     Dates: start: 20101228
  3. ETODOLAC [Suspect]
     Dosage: 200 MG, 2X/DAY
     Route: 048
     Dates: start: 20100414, end: 20100907
  4. AMLODIPINE [Concomitant]
     Indication: HYPERTENSION
     Dosage: 5 MG, 2X/DAY
     Route: 048
     Dates: start: 20101201, end: 20101220
  5. CRESTOR [Concomitant]
     Indication: HYPERLIPIDAEMIA
     Dosage: 5 MG, 1X/DAY
     Route: 048
     Dates: start: 20101201, end: 20101220
  6. AMLODIPINE [Concomitant]
     Dosage: 5 MG, 2X/DAY
     Dates: start: 20101228
  7. CP-690,550 [Suspect]
     Dosage: 5 MG, 2X/DAY
     Route: 048
     Dates: start: 20101130, end: 20101220
  8. ETODOLAC [Suspect]
     Dosage: 200 MG, 1X/DAY
     Route: 048
     Dates: start: 20100908, end: 20101220
  9. MICOMBI [Concomitant]
     Dosage: 1 TAB, 1X/DAY
     Dates: start: 20101228
  10. MEDROL [Suspect]
     Indication: RHEUMATOID ARTHRITIS
     Dosage: 3 MG/DAY
     Route: 048
     Dates: start: 20090602, end: 20101220
  11. CYTOTEC [Concomitant]
     Dosage: 100 UG, 2X/DAY
     Dates: start: 20101228, end: 20110111
  12. MEDROL [Suspect]
     Dosage: 3MG /DAY
     Dates: start: 20101228
  13. CP-690,550 [Suspect]
     Indication: RHEUMATOID ARTHRITIS
     Dosage: 5 MG, 2X/DAY
     Route: 048
     Dates: start: 20091007, end: 20100322
  14. CP-690,550 [Suspect]
     Dosage: 10 MG, 2X/DAY
     Route: 048
     Dates: start: 20100323, end: 20101129
  15. CYTOTEC [Concomitant]
     Indication: GASTRITIS PROPHYLAXIS
     Dosage: 100 UG, 2X/DAY
     Route: 048
     Dates: start: 20090518, end: 20101220
  16. CRESTOR [Concomitant]
     Dosage: 5 MG, 1X/DAY
     Dates: start: 20101228, end: 20110113
  17. MICOMBI [Concomitant]
     Indication: HYPERTENSION
     Dosage: 1 TAB, 1X/DAY
     Route: 048
     Dates: start: 20101006, end: 20101220
  18. ETODOLAC [Suspect]
     Dosage: 200 MG, 1X/DAY
     Route: 048
     Dates: start: 20101228, end: 20110111
  19. SELTOUCH [Concomitant]
     Indication: RHEUMATOID ARTHRITIS
     Dosage: UNK
     Dates: start: 20081125

REACTIONS (1)
  - ILEUS [None]
